FAERS Safety Report 6882634-8 (Version None)
Quarter: 2010Q3

REPORT INFORMATION
  Report Type: 
  Country: None (occurrence: None)
  Receive Date: 20100729
  Receipt Date: 20100723
  Transmission Date: 20110219
  Serious: Yes (Death)
  Sender: FDA-Public Use
  Company Number: US-GILEAD-2010-0030524

PATIENT
  Age: 67 Year
  Sex: Male
  Weight: 74.91 kg

DRUGS (15)
  1. LETAIRIS [Suspect]
     Indication: PULMONARY ARTERIAL HYPERTENSION
     Route: 048
     Dates: start: 20080813
  2. REVATIO [Concomitant]
  3. VENTAVIS [Concomitant]
  4. LASIX [Concomitant]
  5. OXYGEN [Concomitant]
  6. AMLODIPINE BESYLATE [Concomitant]
  7. METOPROLOL TARTRATE [Concomitant]
  8. LISINOPRIL [Concomitant]
  9. ASPIRIN [Concomitant]
  10. FOLIC ACID [Concomitant]
  11. ASCORBIC ACID [Concomitant]
  12. MULTI-VITAMIN [Concomitant]
  13. IRON [Concomitant]
  14. RESTORIL [Concomitant]
  15. NEXIUM [Concomitant]

REACTIONS (3)
  - ACUTE PULMONARY OEDEMA [None]
  - CARDIAC FAILURE CONGESTIVE [None]
  - CARDIO-RESPIRATORY ARREST [None]
